FAERS Safety Report 18596511 (Version 1)
Quarter: 2020Q4

REPORT INFORMATION
  Report Type: Spontaneous
  Country: FR (occurrence: FR)
  Receive Date: 20201209
  Receipt Date: 20201209
  Transmission Date: 20210114
  Serious: Yes (Hospitalization)
  Sender: FDA-Public Use
  Company Number: FR-ABBVIE-20K-056-3681017-00

PATIENT
  Age: 55 Year
  Sex: Female

DRUGS (3)
  1. VENCLYXTO [Suspect]
     Active Substance: VENETOCLAX
     Indication: ACUTE LEUKAEMIA
     Route: 048
     Dates: end: 20201019
  2. VIDAZA [Suspect]
     Active Substance: AZACITIDINE
     Indication: ACUTE LEUKAEMIA
     Dosage: 100 MG, POUDRE POUR SUSPENSION INJECTABLE
     Route: 042
     Dates: start: 2019
  3. AZACITIDINE. [Concomitant]
     Active Substance: AZACITIDINE
     Indication: ACUTE LEUKAEMIA
     Dates: start: 2019, end: 20201019

REACTIONS (2)
  - Acute kidney injury [Not Recovered/Not Resolved]
  - Renal vasculitis [Not Recovered/Not Resolved]

NARRATIVE: CASE EVENT DATE: 20201026
